FAERS Safety Report 13499020 (Version 1)
Quarter: 2017Q2

REPORT INFORMATION
  Report Type: Spontaneous
  Country: US (occurrence: US)
  Receive Date: 20170430
  Receipt Date: 20170430
  Transmission Date: 20170830
  Serious: Yes (Other)
  Sender: FDA-Public Use
  Company Number: None

PATIENT
  Age: 40 Year
  Sex: Male
  Weight: 87.75 kg

DRUGS (3)
  1. ORAGEL 6 HOUR COLD SORE TREATMEN [Suspect]
     Active Substance: BENZOCAINE
     Indication: ORAL HERPES
     Route: 061
     Dates: start: 20170428
  2. SERTRALINE [Concomitant]
     Active Substance: SERTRALINE HYDROCHLORIDE
  3. FINASTERIDE. [Concomitant]
     Active Substance: FINASTERIDE

REACTIONS (8)
  - Confusional state [None]
  - Hallucination [None]
  - Peripheral coldness [None]
  - Palpitations [None]
  - Tremor [None]
  - Paraesthesia [None]
  - Methaemoglobinaemia [None]
  - Hypoaesthesia [None]

NARRATIVE: CASE EVENT DATE: 20170428
